FAERS Safety Report 21385621 (Version 12)
Quarter: 2023Q1

REPORT INFORMATION
  Report Type: Spontaneous
  Country: US (occurrence: US)
  Receive Date: 20220928
  Receipt Date: 20230320
  Transmission Date: 20230417
  Serious: Yes (Hospitalization, Other)
  Sender: FDA-Public Use
  Company Number: US-BIOGEN-2022BI01156795

PATIENT
  Age: 62 Year
  Sex: Female

DRUGS (5)
  1. TYSABRI [Suspect]
     Active Substance: NATALIZUMAB
     Indication: Multiple sclerosis
     Route: 050
     Dates: start: 20100609, end: 20110616
  2. TYSABRI [Suspect]
     Active Substance: NATALIZUMAB
     Dosage: INFUSE OVER 1 HOUR
     Route: 050
     Dates: start: 20120607, end: 20220720
  3. TYSABRI [Suspect]
     Active Substance: NATALIZUMAB
     Route: 050
     Dates: end: 202207
  4. TYSABRI [Suspect]
     Active Substance: NATALIZUMAB
     Route: 050
  5. TYSABRI [Suspect]
     Active Substance: NATALIZUMAB
     Route: 050

REACTIONS (12)
  - Road traffic accident [Recovered/Resolved]
  - Contusion [Not Recovered/Not Resolved]
  - Rib fracture [Recovered/Resolved]
  - Upper limb fracture [Recovered/Resolved]
  - Hip fracture [Recovered/Resolved]
  - Tibia fracture [Recovered/Resolved]
  - Lower limb fracture [Recovered/Resolved]
  - Fractured coccyx [Recovered/Resolved]
  - Concussion [Unknown]
  - Monoplegia [Recovered/Resolved]
  - Hypoaesthesia [Recovered/Resolved]
  - Paraesthesia [Recovered/Resolved]

NARRATIVE: CASE EVENT DATE: 20220908
